FAERS Safety Report 5576412-X (Version None)
Quarter: 2007Q4

REPORT INFORMATION
  Report Type: 
  Country: None (occurrence: None)
  Receive Date: 20071228
  Receipt Date: 20071219
  Transmission Date: 20080405
  Serious: Yes (Other)
  Sender: FDA-Public Use
  Company Number: US-GENENTECH-253279

PATIENT
  Sex: Female

DRUGS (1)
  1. AVASTIN [Suspect]
     Indication: DRUG USE FOR UNKNOWN INDICATION
     Dosage: 15 MG, Q3W
     Route: 042

REACTIONS (5)
  - DYSPHAGIA [None]
  - ERYTHEMA [None]
  - SNEEZING [None]
  - SWELLING FACE [None]
  - THROAT IRRITATION [None]
